FAERS Safety Report 4634969-7 (Version None)
Quarter: 2005Q2

REPORT INFORMATION
  Report Type: 
  Country: None (occurrence: None)
  Receive Date: 20050414
  Receipt Date: 20050315
  Transmission Date: 20051028
  Serious: Yes (Other)
  Sender: FDA-Public Use
  Company Number: GBWYE505815MAR05

PATIENT
  Age: 50 Year
  Sex: Female

DRUGS (5)
  1. ENBREL [Suspect]
     Indication: DRUG USE FOR UNKNOWN INDICATION
     Route: 058
     Dates: start: 20050228, end: 20050309
  2. ENBREL [Suspect]
     Route: 058
     Dates: start: 20050324
  3. SULINDAC [Concomitant]
     Route: 048
  4. HYDROXYCHLOROQUINE SULFATE [Concomitant]
     Dates: start: 20040401
  5. ARAVA [Concomitant]
     Dates: start: 20040707, end: 20050124

REACTIONS (1)
  - CELLULITIS [None]
